FAERS Safety Report 13903354 (Version 1)
Quarter: 2017Q3

REPORT INFORMATION
  Report Type: Spontaneous
  Country: US (occurrence: US)
  Receive Date: 20170824
  Receipt Date: 20170824
  Transmission Date: 20171127
  Serious: No
  Sender: FDA-Public Use
  Company Number: US-PFIZER INC-2017362666

PATIENT
  Age: 58 Year
  Sex: Female

DRUGS (1)
  1. METHYLPREDNISOLONE. [Suspect]
     Active Substance: METHYLPREDNISOLONE
     Dosage: 4 MG, UNK

REACTIONS (12)
  - Musculoskeletal stiffness [Unknown]
  - Gastrooesophageal reflux disease [Unknown]
  - Hand deformity [Unknown]
  - Mouth ulceration [Unknown]
  - Chest pain [Unknown]
  - Joint range of motion decreased [Unknown]
  - Abdominal pain lower [Unknown]
  - Dyspnoea paroxysmal nocturnal [Unknown]
  - Peripheral swelling [Unknown]
  - Dry eye [Unknown]
  - Arthralgia [Unknown]
  - Rash [Unknown]
